FAERS Safety Report 6806318-7 (Version None)
Quarter: 2010Q2

REPORT INFORMATION
  Report Type: 
  Country: None (occurrence: None)
  Receive Date: 20100629
  Receipt Date: 20080425
  Transmission Date: 20101027
  Serious: No
  Sender: FDA-Public Use
  Company Number: US-PFIZER INC-2008006603

PATIENT
  Sex: Male
  Weight: 122.72 kg

DRUGS (5)
  1. TIKOSYN [Suspect]
     Indication: ATRIAL FIBRILLATION
     Route: 048
     Dates: start: 20070601
  2. WARFARIN [Concomitant]
     Route: 048
  3. METOPROLOL [Concomitant]
     Route: 048
  4. ACCUPRIL [Concomitant]
     Route: 048
  5. TEMAZEPAM [Concomitant]
     Dosage: 30 MG QHS
     Route: 048

REACTIONS (1)
  - ATRIAL FIBRILLATION [None]
